FAERS Safety Report 8425699-4 (Version None)
Quarter: 2012Q2

REPORT INFORMATION
  Report Type: 
  Country: None (occurrence: None)
  Receive Date: 20120611
  Receipt Date: 20120605
  Transmission Date: 20120825
  Serious: Yes (Death)
  Sender: FDA-Public Use
  Company Number: PHHY2012CA049091

PATIENT
  Sex: Female

DRUGS (5)
  1. EXELON [Concomitant]
  2. ASPIRIN [Concomitant]
  3. CALCIUM W/VITAMINS NOS [Concomitant]
  4. ZOLEDRONOC ACID [Suspect]
     Dosage: UNK UKN, UNK
     Route: 042
  5. LANOXIN [Concomitant]

REACTIONS (1)
  - DEATH [None]
